FAERS Safety Report 13600325 (Version 3)
Quarter: 2018Q1

REPORT INFORMATION
  Report Type: Report from Study
  Country: GB (occurrence: GB)
  Receive Date: 20170601
  Receipt Date: 20180106
  Transmission Date: 20180508
  Serious: Yes (Death, Hospitalization, Other)
  Sender: FDA-Public Use
  Company Number: GB-AMGEN-GBRSL2017082474

PATIENT
  Age: 67 Year
  Sex: Female

DRUGS (1)
  1. ARANESP [Suspect]
     Active Substance: DARBEPOETIN ALFA
     Indication: PRODUCT USED FOR UNKNOWN INDICATION
     Dosage: 100 MCG, UNK
     Route: 065

REACTIONS (5)
  - Gangrene [Unknown]
  - Death [Fatal]
  - Localised infection [Unknown]
  - Cerebrovascular accident [Unknown]
  - Angiopathy [Unknown]

NARRATIVE: CASE EVENT DATE: 2017
